FAERS Safety Report 6137530-0 (Version None)
Quarter: 2009Q1

REPORT INFORMATION
  Report Type: 
  Country: None (occurrence: None)
  Receive Date: 20090326
  Receipt Date: 20090318
  Transmission Date: 20090719
  Serious: Yes (Hospitalization)
  Sender: FDA-Public Use
  Company Number: OMPQ-NO-0903S-0185

PATIENT
  Age: 70 Year
  Sex: Female

DRUGS (1)
  1. OMNIPAQUE 300 [Suspect]
     Indication: HAEMOPTYSIS
     Dosage: SINGLE DOSE, I.V.
     Route: 042
     Dates: start: 20090306, end: 20090306

REACTIONS (2)
  - INJECTION SITE EXTRAVASATION [None]
  - OEDEMA [None]
